FAERS Safety Report 9774983 (Version 2)
Quarter: 2014Q1

REPORT INFORMATION
  Report Type: Spontaneous
  Country: US (occurrence: None)
  Receive Date: 20131218
  Receipt Date: 20140129
  Transmission Date: 20141002
  Serious: Yes (Hospitalization)
  Sender: FDA-Public Use
  Company Number: SYM-2013-13791

PATIENT
  Age: 22 Year
  Sex: Male
  Weight: 87 kg

DRUGS (11)
  1. ATIVAN [Suspect]
     Indication: SEDATION
     Route: 048
     Dates: start: 20131019
  2. ATIVAN [Suspect]
     Indication: INSOMNIA
     Route: 048
     Dates: start: 20131019
  3. ATIVAN [Suspect]
     Indication: AGITATION
     Route: 048
     Dates: start: 20131019
  4. STUDY DRUG [Suspect]
     Indication: SCHIZOPHRENIA
     Dosage: 9 MG, EVERY NIGHT AT BEDTIME, ORAL
     Route: 048
     Dates: start: 20131005, end: 20131016
  5. HALDOL [Suspect]
     Indication: SEDATION
     Dates: start: 20131019
  6. HALDOL [Suspect]
     Indication: PSYCHOTIC DISORDER
     Dates: start: 20131019
  7. BENADRYL [Suspect]
     Indication: SEDATION
     Dates: start: 20131019
  8. PROLIXIN (FLUHENAZINE HYDROCHLORIDE) (FLUPHENAZINE HYDROCHLORIDE) [Concomitant]
  9. TRAZODONE (TRAZOLDONE) (TRAZODONE) [Concomitant]
  10. COGENTIN (BENZATROPINE MESILATE) (BENZATROPRINE MESILATE) [Concomitant]
  11. SEROQUEL (QUETIAPINE FUMARATE) (QUETIAPINE FUMARATE) [Concomitant]

REACTIONS (5)
  - Concussion [None]
  - Convulsion [None]
  - Grand mal convulsion [None]
  - Blood pressure increased [None]
  - Liver function test abnormal [None]
